FAERS Safety Report 24712170 (Version 2)
Quarter: 2025Q1

REPORT INFORMATION
  Report Type: Spontaneous
  Country: US (occurrence: US)
  Receive Date: 20241209
  Receipt Date: 20250221
  Transmission Date: 20250408
  Serious: No
  Sender: ROCHE
  Company Number: US-ROCHE-10000151138

PATIENT
  Age: 18 Year
  Sex: Male

DRUGS (2)
  1. HEMLIBRA [Suspect]
     Active Substance: EMICIZUMAB-KXWH
     Indication: Factor VIII deficiency
     Dosage: STRENGTH: 105MG/0.7ML, TIME OF LATEST DRUG ADMINISTERED IN RELATION TO ONSET DATE OF EVENT :13/SEP/2
     Route: 058
     Dates: start: 20200610
  2. ELOCTATE [Concomitant]
     Active Substance: EFMOROCTOCOG ALFA

REACTIONS (2)
  - Haemorrhage [Recovered/Resolved]
  - Haemarthrosis [Unknown]

NARRATIVE: CASE EVENT DATE: 20240913
